FAERS Safety Report 7383336-4 (Version None)
Quarter: 2011Q1

REPORT INFORMATION
  Report Type: 
  Country: None (occurrence: None)
  Receive Date: 20110330
  Receipt Date: 20110316
  Transmission Date: 20110831
  Serious: Yes (Hospitalization)
  Sender: FDA-Public Use
  Company Number: TW-JNJFOC-20110307886

PATIENT
  Age: 54 Year
  Sex: Male
  Weight: 74 kg

DRUGS (5)
  1. CARBAMAZEPINE [Suspect]
     Indication: PRODUCT USED FOR UNKNOWN INDICATION
     Route: 065
  2. ACYCLOVIR [Suspect]
     Indication: HERPES ZOSTER
     Route: 048
  3. TRAMADOL [Suspect]
     Indication: ANALGESIC THERAPY
     Dosage: 8.66667 MG TID
     Route: 048
  4. FLUDIAZEPAM [Suspect]
     Indication: PRODUCT USED FOR UNKNOWN INDICATION
     Route: 065
  5. ULTRACET [Suspect]
     Indication: PRODUCT USED FOR UNKNOWN INDICATION
     Dosage: 200 MG TABLET BID
     Route: 048

REACTIONS (8)
  - PYREXIA [None]
  - CHILLS [None]
  - SKIN LESION [None]
  - DYSPHAGIA [None]
  - LEUKOCYTOSIS [None]
  - PRURITUS [None]
  - RASH PAPULAR [None]
  - OROPHARYNGEAL PAIN [None]
